FAERS Safety Report 5535193-6 (Version None)
Quarter: 2007Q4

REPORT INFORMATION
  Report Type: 
  Country: None (occurrence: None)
  Receive Date: 20071206
  Receipt Date: 20071126
  Transmission Date: 20080405
  Serious: Yes (Disabling)
  Sender: FDA-Public Use
  Company Number: FR-JNJFOC-20070600479

PATIENT
  Sex: Male

DRUGS (5)
  1. OFLOCET [Suspect]
     Route: 048
  2. OFLOCET [Suspect]
     Route: 048
  3. OFLOCET [Suspect]
     Indication: PROSTATITIS
     Route: 048
  4. CIFLOX [Concomitant]
     Indication: PROSTATITIS
     Route: 048
  5. ROCEPHIN [Concomitant]
     Route: 065

REACTIONS (7)
  - ARTHRALGIA [None]
  - ASTHENIA [None]
  - DISTURBANCE IN ATTENTION [None]
  - DRY EYE [None]
  - DRY MOUTH [None]
  - HEADACHE [None]
  - TENDONITIS [None]
